FAERS Safety Report 5734319-9 (Version None)
Quarter: 2008Q2

REPORT INFORMATION
  Report Type: 
  Country: None (occurrence: None)
  Receive Date: 20080507
  Receipt Date: 20080428
  Transmission Date: 20081010
  Serious: Yes (Hospitalization)
  Sender: FDA-Public Use
  Company Number: 2008-01460

PATIENT
  Sex: Female

DRUGS (1)
  1. VELCADE [Suspect]
     Indication: MULTIPLE MYELOMA

REACTIONS (4)
  - ABDOMINAL PAIN [None]
  - HAEMOGLOBIN DECREASED [None]
  - PERITONEAL HAEMORRHAGE [None]
  - RETROPERITONEAL HAEMORRHAGE [None]
